FAERS Safety Report 9693102 (Version 1)
Quarter: 2013Q4

REPORT INFORMATION
  Report Type: Spontaneous
  Country: DE (occurrence: DE)
  Receive Date: 20131118
  Receipt Date: 20131118
  Transmission Date: 20140711
  Serious: Yes (Hospitalization, Other)
  Sender: FDA-Public Use
  Company Number: DE-ELI_LILLY_AND_COMPANY-DE201311001691

PATIENT
  Age: 37 Year
  Sex: Male

DRUGS (5)
  1. ZYPREXA [Suspect]
     Indication: BIPOLAR DISORDER
     Dosage: 20 MG, UNKNOWN
     Route: 048
     Dates: start: 20120510, end: 201207
  2. ZYPREXA [Interacting]
     Dosage: 5 MG, UNKNOWN
     Route: 048
     Dates: start: 201207, end: 20130131
  3. QUILONORM RETARD [Interacting]
     Indication: PRODUCT USED FOR UNKNOWN INDICATION
     Dosage: 450 MG, UNKNOWN
     Route: 065
     Dates: start: 20110501, end: 20120915
  4. ERGENYL [Concomitant]
     Indication: PRODUCT USED FOR UNKNOWN INDICATION
     Dosage: 1 DF, UNKNOWN
     Route: 065
     Dates: start: 201209, end: 201210
  5. ABILIFY [Concomitant]
     Indication: PRODUCT USED FOR UNKNOWN INDICATION
     Dosage: 1 DF, UNKNOWN
     Route: 065
     Dates: start: 201211

REACTIONS (5)
  - Bipolar disorder [Unknown]
  - Weight increased [Recovering/Resolving]
  - Apathy [Unknown]
  - Increased appetite [Unknown]
  - Drug interaction [Recovered/Resolved]
